FAERS Safety Report 23752064 (Version 2)
Quarter: 2024Q2

REPORT INFORMATION
  Report Type: Spontaneous
  Country: US (occurrence: US)
  Receive Date: 20240417
  Receipt Date: 20240424
  Transmission Date: 20240716
  Serious: No
  Sender: FDA-Public Use
  Company Number: US-SA-SAC20240412000890

PATIENT
  Age: 53 Year
  Sex: Female

DRUGS (1)
  1. TZIELD [Suspect]
     Active Substance: TEPLIZUMAB-MZWV
     Indication: Type 1 diabetes mellitus
     Dosage: 1790.7 MG
     Route: 042
     Dates: start: 20240408, end: 20240417

REACTIONS (8)
  - Infusion related reaction [Unknown]
  - Body temperature decreased [Unknown]
  - Paraesthesia [Unknown]
  - Limb discomfort [Unknown]
  - Blood pressure increased [Unknown]
  - Body temperature increased [Unknown]
  - Facial discomfort [Unknown]
  - Liver function test increased [Unknown]

NARRATIVE: CASE EVENT DATE: 20240401
